FAERS Safety Report 5333804-1 (Version None)
Quarter: 2007Q2

REPORT INFORMATION
  Report Type: 
  Country: None (occurrence: None)
  Receive Date: 20070524
  Receipt Date: 20070521
  Transmission Date: 20071010
  Serious: Yes (Hospitalization)
  Sender: FDA-Public Use
  Company Number: US-ELI_LILLY_AND_COMPANY-US200704006469

PATIENT
  Age: 60 Year
  Sex: Male
  Weight: 86.167 kg

DRUGS (2)
  1. HUMALOG [Suspect]
     Indication: DIABETES MELLITUS INSULIN-DEPENDENT
     Dates: start: 20050101
  2. LANTUS [Concomitant]

REACTIONS (2)
  - RENAL DISORDER [None]
  - RENAL FAILURE CHRONIC [None]
